FAERS Safety Report 23072844 (Version 2)
Quarter: 2023Q4

REPORT INFORMATION
  Report Type: Spontaneous
  Country: AU (occurrence: AU)
  Receive Date: 20231017
  Receipt Date: 20231107
  Transmission Date: 20240110
  Serious: Yes (Hospitalization)
  Sender: FDA-Public Use
  Company Number: AU-CAMURUS AB-AU-CAM-23-00745

PATIENT

DRUGS (2)
  1. BUPRENORPHINE [Suspect]
     Active Substance: BUPRENORPHINE
     Indication: Product used for unknown indication
     Dosage: TWO 8MG BUVIDAL INJECTIONS (2 HOURS APART FROM EACH OTHER)
     Route: 065
     Dates: start: 20230929
  2. LYRICA [Concomitant]
     Active Substance: PREGABALIN
     Indication: Product used for unknown indication
     Dosage: ^VERY LARGE DOSE^
     Route: 065

REACTIONS (6)
  - Troponin increased [Unknown]
  - Pneumonia aspiration [Recovering/Resolving]
  - Crying [Unknown]
  - Agitation [Unknown]
  - Off label use [Unknown]
  - Drug titration error [Unknown]

NARRATIVE: CASE EVENT DATE: 20230929
